FAERS Safety Report 7791191-3 (Version None)
Quarter: 2011Q4

REPORT INFORMATION
  Report Type: 
  Country: None (occurrence: None)
  Receive Date: 20111003
  Receipt Date: 20110923
  Transmission Date: 20120403
  Serious: No
  Sender: FDA-Public Use
  Company Number: US-BIOGENIDEC-2011BI036716

PATIENT
  Sex: Female

DRUGS (2)
  1. TYSABRI [Suspect]
     Indication: MULTIPLE SCLEROSIS
     Route: 042
     Dates: start: 20110901
  2. TYSABRI [Suspect]
     Route: 042
     Dates: start: 20090717, end: 20100312

REACTIONS (5)
  - ANXIETY [None]
  - NAUSEA [None]
  - DYSPEPSIA [None]
  - MIGRAINE [None]
  - FATIGUE [None]
